FAERS Safety Report 19414122 (Version 1)
Quarter: 2021Q2

REPORT INFORMATION
  Report Type: Spontaneous
  Country: IT (occurrence: IT)
  Receive Date: 20210615
  Receipt Date: 20210615
  Transmission Date: 20210717
  Serious: Yes (Other)
  Sender: FDA-Public Use
  Company Number: IT-SUN PHARMACEUTICAL INDUSTRIES LTD-2021R1-300359

PATIENT
  Age: 88 Year
  Sex: Female

DRUGS (7)
  1. DARUNAVIR/COBICISTAT [Interacting]
     Active Substance: COBICISTAT\DARUNAVIR ETHANOLATE
     Indication: COVID-19
     Dosage: 800/150 MG DAILY
  2. HYDROXYCHLOROQUINE [Interacting]
     Active Substance: HYDROXYCHLOROQUINE
     Dosage: 400 MILLIGRAM, DAILYFOR 5?7 DAYS
  3. HALOPERIDOL. [Interacting]
     Active Substance: HALOPERIDOL
     Indication: COVID-19
     Route: 065
  4. PROMAZINE [Concomitant]
     Active Substance: PROMAZINE
     Indication: PRODUCT USED FOR UNKNOWN INDICATION
  5. ENOXAPARIN [Concomitant]
     Active Substance: ENOXAPARIN
     Indication: PRODUCT USED FOR UNKNOWN INDICATION
  6. POTASSIUM CHLORIDE. [Concomitant]
     Active Substance: POTASSIUM CHLORIDE
     Indication: PRODUCT USED FOR UNKNOWN INDICATION
  7. HYDROXYCHLOROQUINE [Suspect]
     Active Substance: HYDROXYCHLOROQUINE
     Indication: COVID-19
     Dosage: 800 MILLIGRAM FOR FIRST TIME

REACTIONS (2)
  - Drug interaction [Unknown]
  - Electrocardiogram QT prolonged [Recovering/Resolving]
